FAERS Safety Report 5916957-3 (Version None)
Quarter: 2008Q4

REPORT INFORMATION
  Report Type: 
  Country: None (occurrence: None)
  Receive Date: 20081013
  Receipt Date: 20081001
  Transmission Date: 20090506
  Serious: Yes (Other)
  Sender: FDA-Public Use
  Company Number: US-CVT-080086

PATIENT

DRUGS (11)
  1. RANEXA [Suspect]
     Indication: DRUG USE FOR UNKNOWN INDICATION
     Dosage: 500 MG, BID
     Route: 048
  2. LEVAQUIN [Suspect]
     Route: 048
  3. DIGOXIN                            /00017701/ [Concomitant]
     Dosage: 0.125 MG, QD
     Route: 048
  4. ALTACE [Concomitant]
     Dosage: 2.5 MG, QD
     Route: 048
  5. ASPIRIN [Concomitant]
     Dosage: 81 MG, QD
     Route: 048
  6. SPIRONOLACTONE [Concomitant]
     Dosage: 25 MG, QD
     Route: 048
  7. LIPITOR                            /01326101/ [Concomitant]
     Dosage: 10 MG, QD
     Route: 048
  8. QUININE SULPHATE [Concomitant]
     Dosage: 325 MG, QD
     Route: 048
  9. COUMADIN [Concomitant]
     Dosage: 3 MG, QD
     Route: 048
  10. COREG [Concomitant]
     Dosage: 12.5 MG, BID
     Route: 048
  11. COREG [Concomitant]
     Dosage: 25 MG, BID
     Route: 048

REACTIONS (1)
  - VENTRICULAR TACHYCARDIA [None]
